FAERS Safety Report 4327669-4 (Version None)
Quarter: 2004Q1

REPORT INFORMATION
  Report Type: 
  Country: None (occurrence: None)
  Receive Date: 20040331
  Receipt Date: 20030130
  Transmission Date: 20041129
  Serious: No
  Sender: FDA-Public Use
  Company Number: US-GLAXOSMITHKLINE-A0394739A

PATIENT
  Sex: Female

DRUGS (1)
  1. AMERGE [Suspect]
     Indication: MIGRAINE
     Dosage: 1MG SEE DOSAGE TEXT
     Route: 048
     Dates: start: 20030101, end: 20030101

REACTIONS (1)
  - DRUG INEFFECTIVE [None]
